FAERS Safety Report 14032860 (Version 1)
Quarter: 2017Q4

REPORT INFORMATION
  Report Type: Spontaneous
  Country: DE (occurrence: DE)
  Receive Date: 20171003
  Receipt Date: 20171003
  Transmission Date: 20180321
  Serious: Yes (Death, Other)
  Sender: FDA-Public Use
  Company Number: DE-009507513-1710DEU000180

PATIENT
  Age: 70 Year
  Sex: Male

DRUGS (1)
  1. KEYTRUDA [Suspect]
     Active Substance: PEMBROLIZUMAB
     Indication: PLEURAL MESOTHELIOMA
     Dosage: 2 MG/KG, UNK
     Route: 042
     Dates: start: 201707, end: 2017

REACTIONS (3)
  - Pneumonitis [Unknown]
  - Death [Fatal]
  - Off label use [Unknown]

NARRATIVE: CASE EVENT DATE: 201707
